FAERS Safety Report 24627302 (Version 3)
Quarter: 2024Q4

REPORT INFORMATION
  Report Type: Report from Study
  Country: TR (occurrence: TR)
  Receive Date: 20241116
  Receipt Date: 20241206
  Transmission Date: 20250114
  Serious: Yes (Hospitalization, Other)
  Sender: JAZZ
  Company Number: TR-JAZZ PHARMACEUTICALS-2024-TR-021140

PATIENT
  Age: 39 Year
  Sex: Male
  Weight: 74 kg

DRUGS (2)
  1. XYREM [Suspect]
     Active Substance: SODIUM OXYBATE
     Indication: Narcolepsy
     Dosage: 9 GRAM
     Route: 048
     Dates: start: 20230728, end: 20241025
  2. XYREM [Suspect]
     Active Substance: SODIUM OXYBATE
     Indication: Cataplexy

REACTIONS (4)
  - Loss of consciousness [Recovered/Resolved]
  - Intentional overdose [Unknown]
  - Drug abuse [Recovered/Resolved]
  - Suicide attempt [Recovered/Resolved]

NARRATIVE: CASE EVENT DATE: 20241025
